FAERS Safety Report 9450622 (Version 2)
Quarter: 2013Q3

REPORT INFORMATION
  Report Type: Spontaneous
  Country: US (occurrence: US)
  Receive Date: 20130809
  Receipt Date: 20130814
  Transmission Date: 20140515
  Serious: Yes (Other)
  Sender: FDA-Public Use
  Company Number: US-BAYER-2013-096448

PATIENT
  Age: 23 Year
  Sex: Female

DRUGS (1)
  1. MIRENA [Suspect]
     Indication: CONTRACEPTION
     Dosage: 20 ?G/D, CONT
     Route: 015
     Dates: start: 201210

REACTIONS (9)
  - Splenic infarction [None]
  - Abdominal pain [None]
  - Back pain [None]
  - Pyrexia [None]
  - Chills [None]
  - Vulvovaginal pain [None]
  - Sciatica [None]
  - Sensation of pressure [None]
  - Metrorrhagia [None]
